FAERS Safety Report 7276387-1 (Version None)
Quarter: 2011Q1

REPORT INFORMATION
  Report Type: 
  Country: None (occurrence: None)
  Receive Date: 20110204
  Receipt Date: 20110124
  Transmission Date: 20110831
  Serious: Yes (Life-Threatening, Hospitalization)
  Sender: FDA-Public Use
  Company Number: IE-PFIZER INC-IE-WYE-H18346810

PATIENT
  Age: 15 Year
  Sex: Female
  Weight: 75 kg

DRUGS (9)
  1. PROTIUM [Suspect]
     Indication: GASTRIC HAEMORRHAGE
     Dosage: 40 MG, 2X/DAY
     Route: 048
     Dates: start: 20100801
  2. BUSCOPAN [Concomitant]
  3. PIRITION [Concomitant]
     Dosage: 4 MG, 1X/DAY
     Dates: start: 20100712
  4. TELFAST [Concomitant]
     Dosage: 180 MG, 2X/DAY
     Dates: start: 20100712
  5. RANITIDINE [Concomitant]
     Dosage: 150 MG, 2X/DAY
     Dates: start: 20100712
  6. XYZAL [Concomitant]
     Dosage: 5 MG, UNK
     Dates: start: 20100712
  7. MIGRALEVE [Concomitant]
  8. PIRITION [Concomitant]
     Dosage: 4 MG, 2X/DAY
     Dates: start: 20100712
  9. FLIXOTIDE [Concomitant]

REACTIONS (16)
  - LETHARGY [None]
  - DRUG SCREEN POSITIVE [None]
  - DIZZINESS [None]
  - VISION BLURRED [None]
  - ANXIETY [None]
  - ABDOMINAL PAIN [None]
  - ANAPHYLACTIC REACTION [None]
  - ANGIOEDEMA [None]
  - MYALGIA [None]
  - RASH [None]
  - HEADACHE [None]
  - MALAISE [None]
  - PCO2 DECREASED [None]
  - ASTHENIA [None]
  - TEMPERATURE INTOLERANCE [None]
  - ACNE [None]
